FAERS Safety Report 6061707-6 (Version None)
Quarter: 2009Q1

REPORT INFORMATION
  Report Type: 
  Country: None (occurrence: None)
  Receive Date: 20090202
  Receipt Date: 20090123
  Transmission Date: 20090719
  Serious: Yes (Other)
  Sender: FDA-Public Use
  Company Number: US-SANOFI-SYNTHELABO-A03200900366

PATIENT
  Age: 62 Year
  Sex: Male

DRUGS (3)
  1. ZOFRAN [Suspect]
     Indication: DRUG USE FOR UNKNOWN INDICATION
     Dosage: UNK
     Route: 065
  2. ELOXATIN [Suspect]
     Indication: DRUG USE FOR UNKNOWN INDICATION
     Dosage: UNK
     Route: 042
  3. XELODA [Suspect]
     Indication: COLON CANCER
     Dosage: UNK
     Route: 065
     Dates: start: 20080701

REACTIONS (2)
  - ATRIAL FIBRILLATION [None]
  - HEART RATE IRREGULAR [None]
